FAERS Safety Report 5815730-4 (Version None)
Quarter: 2008Q3

REPORT INFORMATION
  Report Type: 
  Country: None (occurrence: None)
  Receive Date: 20080716
  Receipt Date: 20080716
  Transmission Date: 20090109
  Serious: Yes (Hospitalization)
  Sender: FDA-Public Use
  Company Number: None

PATIENT
  Sex: Female
  Weight: 75.6 kg

DRUGS (1)
  1. MELPHALAN [Suspect]
     Dosage: 295 MG
     Dates: end: 20080325

REACTIONS (7)
  - ANOREXIA [None]
  - MUCOSAL INFLAMMATION [None]
  - SEPSIS [None]
  - STEM CELL TRANSPLANT [None]
  - URINARY TRACT INFECTION [None]
  - UROSEPSIS [None]
  - WEIGHT DECREASED [None]
